FAERS Safety Report 13119704 (Version 2)
Quarter: 2017Q1

REPORT INFORMATION
  Report Type: Spontaneous
  Country: AU (occurrence: AU)
  Receive Date: 20170117
  Receipt Date: 20170121
  Transmission Date: 20170428
  Serious: Yes (Hospitalization)
  Sender: FDA-Public Use
  Company Number: AU-BAXTER-2017BAX000895

PATIENT
  Age: 62 Year
  Sex: Male

DRUGS (8)
  1. ATENOLOL. [Concomitant]
     Active Substance: ATENOLOL
     Indication: HYPERTENSION
     Route: 048
  2. TAZOCIN [Suspect]
     Active Substance: PIPERACILLIN SODIUM\TAZOBACTAM SODIUM
     Indication: ESCHERICHIA BACTERAEMIA
     Dosage: INJECTION, INTRAVENOUS INFUSION, ONE TIME
     Route: 042
     Dates: start: 20170103
  3. STERILE WATER [Suspect]
     Active Substance: WATER
     Indication: MEDICATION DILUTION
     Dosage: INJECTION, INTRAVENOUS INFUSION, ONE TIME
     Route: 042
     Dates: start: 20170104, end: 20170107
  4. BAXTER 0.9% SODIUM CHLORIDE 9G_L INJECTION BP BAG AHB1324 [Suspect]
     Active Substance: SODIUM CHLORIDE
     Indication: MEDICATION DILUTION
     Dosage: INJECTION, INTRAVENOUS INFUSION, ONE TIME
     Route: 042
     Dates: start: 20170104, end: 20170107
  5. TAZOCIN [Suspect]
     Active Substance: PIPERACILLIN SODIUM\TAZOBACTAM SODIUM
     Indication: UROSEPSIS
     Dosage: INJECTION, INTRAVENOUS INFUSION, ONE TIME
     Route: 042
     Dates: start: 20170104, end: 20170107
  6. CEFTRIAXONE. [Suspect]
     Active Substance: CEFTRIAXONE
     Indication: PRODUCT USED FOR UNKNOWN INDICATION
     Dosage: STAT
     Route: 065
     Dates: start: 20170101
  7. CEFTRIAXONE. [Suspect]
     Active Substance: CEFTRIAXONE
     Route: 065
     Dates: start: 20170102
  8. GENTAMICIN. [Suspect]
     Active Substance: GENTAMICIN
     Indication: PRODUCT USED FOR UNKNOWN INDICATION
     Route: 065
     Dates: start: 20170101

REACTIONS (2)
  - Rash pruritic [Recovering/Resolving]
  - Rash maculo-papular [Recovering/Resolving]

NARRATIVE: CASE EVENT DATE: 20170107
